FAERS Safety Report 9350992 (Version 1)
Quarter: 2013Q2

REPORT INFORMATION
  Report Type: Report from Study
  Country: DK (occurrence: DK)
  Receive Date: 20130617
  Receipt Date: 20130617
  Transmission Date: 20140414
  Serious: Yes (Hospitalization, Other)
  Sender: FDA-Public Use
  Company Number: DK-AMGEN-DNKSP2012009859

PATIENT
  Age: 78 Year
  Sex: Female
  Weight: 58 kg

DRUGS (13)
  1. PEGFILGRASTIM [Suspect]
     Indication: B-CELL LYMPHOMA
     Dosage: 6 MG, UNK
     Route: 058
     Dates: start: 20120110
  2. PREDNISONE [Concomitant]
     Indication: B-CELL LYMPHOMA
     Dosage: 100 MG, UNK
     Route: 048
     Dates: start: 20120109
  3. SENDOXAN [Concomitant]
     Indication: DIFFUSE LARGE B-CELL LYMPHOMA
     Dosage: 1320 MG, UNK
     Route: 042
     Dates: start: 20120109
  4. DOXORUBICIN [Concomitant]
     Indication: B-CELL LYMPHOMA
     Dosage: 88 MG, UNK
     Route: 042
     Dates: start: 20120109
  5. VINCRISTINE [Concomitant]
     Indication: B-CELL LYMPHOMA
     Dosage: 2 MG, UNK
     Route: 042
     Dates: start: 20120109
  6. RITUXIMAB [Concomitant]
     Indication: B-CELL LYMPHOMA
     Dosage: 600 MG, UNK
     Route: 042
     Dates: start: 20120109
  7. PANTOPRAZOLE [Concomitant]
     Indication: DYSPEPSIA
     Dosage: 40 MG, UNK
     Route: 048
     Dates: start: 20120105
  8. TENORETIC [Concomitant]
     Indication: HYPERTENSION
     Dosage: UNK
     Route: 048
     Dates: start: 20111218
  9. SIMVASTIN [Concomitant]
     Indication: BLOOD CHOLESTEROL INCREASED
     Dosage: 40 MG, UNK
     Route: 048
     Dates: start: 20100914
  10. CODALGIN [Concomitant]
     Dosage: 10 MG, UNK
     Route: 048
     Dates: start: 20120107
  11. MIRTAZAPIN [Concomitant]
     Indication: DEPRESSION
     Dosage: 15 MG, UNK
     Route: 048
     Dates: start: 20111219
  12. VENLAFAXINE [Concomitant]
     Indication: DEPRESSION
     Dosage: 75 MG, UNK
     Route: 048
     Dates: start: 20120105
  13. MORPHINE SULFATE [Concomitant]

REACTIONS (4)
  - Dehydration [Recovered/Resolved]
  - Oral candidiasis [Recovered/Resolved]
  - Dizziness [Unknown]
  - Weight decreased [Recovered/Resolved]
